FAERS Safety Report 22140279 (Version 1)
Quarter: 2023Q1

REPORT INFORMATION
  Report Type: Spontaneous
  Country: US (occurrence: None)
  Receive Date: 20230324
  Receipt Date: 20230324
  Transmission Date: 20230418
  Serious: Yes (Other)
  Sender: FDA-Public Use
  Company Number: None

PATIENT
  Age: 35 Year
  Sex: Female
  Weight: 81 kg

DRUGS (4)
  1. BUPRENORPHINE [Suspect]
     Active Substance: BUPRENORPHINE
     Indication: Drug dependence
     Dosage: OTHER QUANTITY : 1.5 TABLET(S);?FREQUENCY : 3 TIMES A DAY;?
     Route: 060
  2. SUBUTEX [Concomitant]
     Active Substance: BUPRENORPHINE HYDROCHLORIDE
  3. PROZAC [Concomitant]
     Active Substance: FLUOXETINE HYDROCHLORIDE
  4. ADDERALL [Concomitant]
     Active Substance: AMPHETAMINE ASPARTATE\AMPHETAMINE SULFATE\DEXTROAMPHETAMINE SACCHARATE\DEXTROAMPHETAMINE SULFATE

REACTIONS (5)
  - Tooth fracture [None]
  - Breath odour [None]
  - Device physical property issue [None]
  - Pain [None]
  - Tooth disorder [None]

NARRATIVE: CASE EVENT DATE: 20220120
